FAERS Safety Report 22157142 (Version 2)
Quarter: 2023Q2

REPORT INFORMATION
  Report Type: Spontaneous
  Country: US (occurrence: US)
  Receive Date: 20230330
  Receipt Date: 20230413
  Transmission Date: 20230721
  Serious: Yes (Hospitalization)
  Sender: FDA-Public Use
  Company Number: US-TEVA-2023-US-2870172

PATIENT
  Age: 46 Year
  Sex: Male

DRUGS (1)
  1. WARFARIN [Suspect]
     Active Substance: WARFARIN
     Indication: Antiphospholipid syndrome
     Route: 065

REACTIONS (4)
  - Anticoagulation drug level above therapeutic [Recovering/Resolving]
  - Treatment noncompliance [Unknown]
  - Intentional overdose [Unknown]
  - Intentional product misuse [Unknown]
